FAERS Safety Report 5535607-1 (Version None)
Quarter: 2007Q4

REPORT INFORMATION
  Report Type: 
  Country: None (occurrence: None)
  Receive Date: 20071206
  Receipt Date: 20061215
  Transmission Date: 20080405
  Serious: Yes (Hospitalization)
  Sender: FDA-Public Use
  Company Number: US-AMGEN-US204031

PATIENT
  Sex: Male
  Weight: 103.5 kg

DRUGS (3)
  1. ENBREL [Suspect]
     Indication: RHEUMATOID ARTHRITIS
     Route: 058
     Dates: start: 20060515, end: 20060608
  2. PREDNISONE TAB [Concomitant]
     Route: 048
     Dates: start: 20061107
  3. HYDROXYCHLOROQUINE SULFATE [Concomitant]
     Route: 048
     Dates: start: 20060401, end: 20061001

REACTIONS (1)
  - ACUTE LEUKAEMIA [None]
